FAERS Safety Report 7283406-5 (Version None)
Quarter: 2011Q1

REPORT INFORMATION
  Report Type: 
  Country: None (occurrence: None)
  Receive Date: 20110204
  Receipt Date: 20110204
  Transmission Date: 20110831
  Serious: Yes (Hospitalization, Other)
  Sender: FDA-Public Use
  Company Number: None

PATIENT
  Sex: Female
  Weight: 72.5755 kg

DRUGS (4)
  1. CYMBALTA [Suspect]
     Indication: INSOMNIA
     Dosage: 30 MG. 10 DAYS 1 A DAY PO; 60 MG. 1 A DAY PO
     Route: 048
     Dates: start: 20100401, end: 20101113
  2. CYMBALTA [Suspect]
     Indication: DEPRESSION
     Dosage: 30 MG. 10 DAYS 1 A DAY PO; 60 MG. 1 A DAY PO
     Route: 048
     Dates: start: 20100401, end: 20101113
  3. CYMBALTA [Suspect]
     Indication: INSOMNIA
     Dosage: 30 MG. 10 DAYS 1 A DAY PO; 60 MG. 1 A DAY PO
     Route: 048
     Dates: start: 20100401
  4. CYMBALTA [Suspect]
     Indication: DEPRESSION
     Dosage: 30 MG. 10 DAYS 1 A DAY PO; 60 MG. 1 A DAY PO
     Route: 048
     Dates: start: 20100401

REACTIONS (22)
  - MUSCLE SPASMS [None]
  - DIZZINESS [None]
  - PAIN [None]
  - IRRITABILITY [None]
  - ASTHENIA [None]
  - FALL [None]
  - HYPOAESTHESIA [None]
  - CHROMATURIA [None]
  - BALANCE DISORDER [None]
  - HEADACHE [None]
  - MEMORY IMPAIRMENT [None]
  - HOSTILITY [None]
  - OPTIC NERVE DISORDER [None]
  - ERYTHEMA [None]
  - FATIGUE [None]
  - MOOD ALTERED [None]
  - PARAESTHESIA [None]
  - HYPERSOMNIA [None]
  - CONFUSIONAL STATE [None]
  - HAEMORRHAGE [None]
  - PRURITUS [None]
  - VISUAL IMPAIRMENT [None]
